FAERS Safety Report 8577027-1 (Version None)
Quarter: 2012Q3

REPORT INFORMATION
  Report Type: 
  Country: None (occurrence: None)
  Receive Date: 20120807
  Receipt Date: 20120727
  Transmission Date: 20120928
  Serious: Yes (Hospitalization)
  Sender: FDA-Public Use
  Company Number: US-BAYER-2012-076766

PATIENT
  Age: 40 Year
  Sex: Female
  Weight: 88.889 kg

DRUGS (19)
  1. VITAMIN D [Concomitant]
     Dosage: 50,000 UNITS MONTHLY
  2. ASPIRIN [Concomitant]
     Dosage: 81 MG, DAILY
  3. AZITHROMYCIN [Concomitant]
     Dosage: 500 MG, UNK
     Dates: start: 20100818
  4. YAZ [Suspect]
     Dosage: UNK
  5. POTASSIUM CHLORIDE [Concomitant]
     Dosage: 20 MEQ, DAILY
  6. WELLBUTRIN SR [Concomitant]
     Dosage: 200 MG, TWICE DAILY
  7. ADVAIR DISKUS 100/50 [Concomitant]
     Dosage: 500-50, UNK
     Dates: start: 20100703
  8. ALBUTEROL [Concomitant]
     Indication: WHEEZING
     Dosage: 2 PUFFS, THREE TIMES A DAY
     Route: 045
  9. HYDROXYZINE HCL [Concomitant]
     Dosage: 25 MG, UNK
     Dates: start: 20100503, end: 20100805
  10. TUSSIONEX [Concomitant]
     Dosage: UNK
     Dates: start: 20100715
  11. METOPROLOL TARTRATE [Concomitant]
     Dosage: 25 MG, DAILY
  12. LEXAPRO [Concomitant]
     Dosage: 20 MG, TWICE DAILY
  13. PANTOPRAZOLE [Concomitant]
     Dosage: 40 MG, UNK
     Dates: start: 20100818
  14. DROSPIRENONE AND ETHINYL ESTRADIOL [Suspect]
     Dosage: UNK
  15. LUNESTA [Concomitant]
     Dosage: 3 MG, UNK
     Dates: start: 20100511, end: 20100715
  16. NORVASC [Concomitant]
     Dosage: 10 MG, DAILY
  17. ALLEGRA [Concomitant]
     Indication: MULTIPLE ALLERGIES
     Dosage: 30 MG, AS NEEDED
  18. FERROUS SULFATE TAB [Concomitant]
     Dosage: 325 MG, EVERY OTHER DAY
  19. LEVAQUIN [Concomitant]
     Dosage: 500 MG, UNK
     Dates: start: 20100830

REACTIONS (2)
  - DEEP VEIN THROMBOSIS [None]
  - PULMONARY EMBOLISM [None]
